APPROVED DRUG PRODUCT: DILTIAZEM HYDROCHLORIDE
Active Ingredient: DILTIAZEM HYDROCHLORIDE
Strength: 30MG
Dosage Form/Route: TABLET;ORAL
Application: A074185 | Product #001 | TE Code: AB
Applicant: TEVA PHARMACEUTICALS USA INC
Approved: May 31, 1995 | RLD: No | RS: No | Type: RX